FAERS Safety Report 7347272-1 (Version None)
Quarter: 2011Q1

REPORT INFORMATION
  Report Type: 
  Country: None (occurrence: None)
  Receive Date: 20110311
  Receipt Date: 20110310
  Transmission Date: 20110831
  Serious: Yes (Hospitalization)
  Sender: FDA-Public Use
  Company Number: US-PFIZER INC-2011053735

PATIENT
  Sex: Male
  Weight: 81.633 kg

DRUGS (1)
  1. EFFEXOR [Suspect]
     Indication: ANXIETY
     Dosage: UNK, DAILY
     Route: 048
     Dates: start: 20061001, end: 20061001

REACTIONS (1)
  - DYSPNOEA [None]
